APPROVED DRUG PRODUCT: ZONISAMIDE
Active Ingredient: ZONISAMIDE
Strength: 25MG
Dosage Form/Route: CAPSULE;ORAL
Application: A077634 | Product #001
Applicant: SUN PHARMACEUTICAL INDUSTRIES LTD
Approved: Mar 17, 2006 | RLD: No | RS: No | Type: DISCN